FAERS Safety Report 5826585-6 (Version None)
Quarter: 2008Q3

REPORT INFORMATION
  Report Type: 
  Country: None (occurrence: None)
  Receive Date: 20080729
  Receipt Date: 20080729
  Transmission Date: 20090109
  Serious: Yes (Death)
  Sender: FDA-Public Use
  Company Number: None

PATIENT
  Age: 79 Year
  Sex: Male
  Weight: 106 kg

DRUGS (1)
  1. SORAFENIB 200MG TABLETS, BAYER [Suspect]
     Indication: RENAL CELL CARCINOMA
     Dosage: 400MG Q 12HRS PO
     Route: 048
     Dates: start: 20071123, end: 20071211

REACTIONS (2)
  - DISEASE PROGRESSION [None]
  - GENERAL PHYSICAL HEALTH DETERIORATION [None]
